FAERS Safety Report 9889214 (Version 1)
Quarter: 2014Q1

REPORT INFORMATION
  Report Type: Spontaneous
  Country: US (occurrence: US)
  Receive Date: 20140211
  Receipt Date: 20140211
  Transmission Date: 20141002
  Serious: Yes (Other)
  Sender: FDA-Public Use
  Company Number: US-SA-2014SA015725

PATIENT
  Age: 59 Year
  Sex: Male

DRUGS (2)
  1. RENVELA [Suspect]
     Indication: HYPERPHOSPHATAEMIA
     Dosage: 800 MG; 3 WITH MEALS AND 1 WITH SNACKS
     Route: 065
     Dates: start: 20130424, end: 20140129
  2. COGENTIN [Interacting]
     Indication: PARKINSON^S DISEASE
     Route: 065

REACTIONS (2)
  - Dyspnoea [Recovered/Resolved]
  - Drug interaction [Recovered/Resolved]
